FAERS Safety Report 14598888 (Version 1)
Quarter: 2018Q1

REPORT INFORMATION
  Report Type: Spontaneous
  Country: US (occurrence: US)
  Receive Date: 20180302
  Receipt Date: 20180302
  Transmission Date: 20180509
  Serious: Yes (Other)
  Sender: FDA-Public Use
  Company Number: None

PATIENT
  Age: 39 Year
  Sex: Female
  Weight: 80.55 kg

DRUGS (3)
  1. LEVOXYL [Suspect]
     Active Substance: LEVOTHYROXINE SODIUM
     Indication: THYROID CANCER
     Route: 048
     Dates: start: 20160601, end: 20180213
  2. OMEPRAZOLE. [Suspect]
     Active Substance: OMEPRAZOLE
     Indication: GASTRIC DISORDER
     Route: 048
     Dates: start: 20171125, end: 20180302
  3. LEVOXYL 175 MCG [Concomitant]
     Dates: start: 20160601

REACTIONS (5)
  - Palpitations [None]
  - Feeling hot [None]
  - Irritability [None]
  - Feeling abnormal [None]
  - Cardiac disorder [None]

NARRATIVE: CASE EVENT DATE: 20180213
